FAERS Safety Report 4617930-8 (Version None)
Quarter: 2005Q1

REPORT INFORMATION
  Report Type: 
  Country: None (occurrence: None)
  Receive Date: 20050322
  Receipt Date: 20050316
  Transmission Date: 20050727
  Serious: Yes (Life-Threatening)
  Sender: FDA-Public Use
  Company Number: 2005AP01751

PATIENT
  Age: 50 Year
  Sex: Male

DRUGS (2)
  1. IRESSA [Suspect]
     Indication: NON-SMALL CELL LUNG CANCER
     Dosage: 250 MG DAILY PO
     Route: 048
     Dates: start: 20041001, end: 20041201
  2. IRESSA [Suspect]
     Indication: NON-SMALL CELL LUNG CANCER
     Dosage: 250 MG DAILY PO
     Route: 048
     Dates: start: 20041201, end: 20041201

REACTIONS (4)
  - CARDIAC FAILURE [None]
  - CHEST X-RAY ABNORMAL [None]
  - DYSPNOEA [None]
  - HEPATIC FUNCTION ABNORMAL [None]
